FAERS Safety Report 13452511 (Version 1)
Quarter: 2017Q2

REPORT INFORMATION
  Report Type: Spontaneous
  Country: US (occurrence: US)
  Receive Date: 20170418
  Receipt Date: 20170418
  Transmission Date: 20170830
  Serious: Yes (Other)
  Sender: FDA-Public Use
  Company Number: US-TEVA-698375USA

PATIENT

DRUGS (2)
  1. WARFARIN [Suspect]
     Active Substance: WARFARIN
     Route: 065
     Dates: end: 201609
  2. WARFARIN [Suspect]
     Active Substance: WARFARIN
     Dates: start: 2016

REACTIONS (1)
  - International normalised ratio fluctuation [Unknown]

NARRATIVE: CASE EVENT DATE: 20161021
